FAERS Safety Report 6914874-3 (Version None)
Quarter: 2010Q3

REPORT INFORMATION
  Report Type: 
  Country: None (occurrence: None)
  Receive Date: 20100804
  Receipt Date: 20100804
  Transmission Date: 20110219
  Serious: Yes (Hospitalization)
  Sender: FDA-Public Use
  Company Number: None

PATIENT
  Age: 68 Year
  Sex: Male

DRUGS (1)
  1. OLANZAPINE [Suspect]
     Dates: start: 20100429

REACTIONS (3)
  - COGNITIVE DISORDER [None]
  - EXPRESSIVE LANGUAGE DISORDER [None]
  - GAIT DISTURBANCE [None]
